FAERS Safety Report 16210541 (Version 1)
Quarter: 2019Q2

REPORT INFORMATION
  Report Type: Spontaneous
  Country: DE (occurrence: DE)
  Receive Date: 20190418
  Receipt Date: 20190418
  Transmission Date: 20190711
  Serious: Yes (Other)
  Sender: FDA-Public Use
  Company Number: DE-DRREDDYS-GER/GER/19/0109216

PATIENT
  Age: 60 Year
  Sex: Male

DRUGS (12)
  1. PERAMPANEL [Suspect]
     Active Substance: PERAMPANEL
     Indication: POST-ANOXIC MYOCLONUS
  2. LAMOTRIGINE. [Suspect]
     Active Substance: LAMOTRIGINE
     Indication: POST-ANOXIC MYOCLONUS
  3. CLONAZEPAM. [Suspect]
     Active Substance: CLONAZEPAM
     Indication: POST-ANOXIC MYOCLONUS
  4. DRONABINOL. [Suspect]
     Active Substance: DRONABINOL
     Indication: POST-ANOXIC MYOCLONUS
     Dosage: 30 DROPS PER DAY, EQUIVALENT TO 26.3 MG/D
  5. LEVETIRACETAM. [Suspect]
     Active Substance: LEVETIRACETAM
     Indication: POST-ANOXIC MYOCLONUS
  6. ZONISAMIDE. [Suspect]
     Active Substance: ZONISAMIDE
     Indication: POST-ANOXIC MYOCLONUS
  7. PERAMPANEL [Suspect]
     Active Substance: PERAMPANEL
     Indication: AGGRESSION
     Dosage: PERAMPANEL 2MG PER DAY OR 4MG DAY ON ALTERNATE DAYS
  8. GABAPENTIN. [Suspect]
     Active Substance: GABAPENTIN
     Indication: POST-ANOXIC MYOCLONUS
  9. TOPIRAMATE. [Suspect]
     Active Substance: TOPIRAMATE
     Indication: POST-ANOXIC MYOCLONUS
  10. LEVETIRACETAM. [Suspect]
     Active Substance: LEVETIRACETAM
  11. BRIVARACETAM [Suspect]
     Active Substance: BRIVARACETAM
     Indication: POST-ANOXIC MYOCLONUS
  12. VALPROIC ACID. [Suspect]
     Active Substance: VALPROIC ACID
     Indication: POST-ANOXIC MYOCLONUS
     Route: 065

REACTIONS (14)
  - Myoclonus [Recovering/Resolving]
  - Vomiting [Unknown]
  - Dystonia [Unknown]
  - Speech disorder [Unknown]
  - Rash [Unknown]
  - Cerebellar ataxia [Unknown]
  - Salivary hypersecretion [Unknown]
  - Dysarthria [Unknown]
  - Fatigue [Unknown]
  - Parkinsonism [Unknown]
  - Nausea [Unknown]
  - Drug intolerance [Unknown]
  - Quadriparesis [Unknown]
  - Facial paresis [Unknown]
